FAERS Safety Report 6614056-9 (Version None)
Quarter: 2010Q1

REPORT INFORMATION
  Report Type: 
  Country: None (occurrence: None)
  Receive Date: 20100304
  Receipt Date: 20100219
  Transmission Date: 20100710
  Serious: Yes (Hospitalization, Other)
  Sender: FDA-Public Use
  Company Number: PHEH2008US08947

PATIENT
  Sex: Female

DRUGS (42)
  1. ZOMETA [Suspect]
     Dosage: UNK
  2. AREDIA [Suspect]
     Dosage: MONTHLY
     Dates: end: 20040101
  3. THALIDOMIDE [Concomitant]
  4. MORPHINE SULFATE [Concomitant]
  5. FLUOXETINE [Concomitant]
  6. PREMARIN [Concomitant]
  7. LEVOXYL [Concomitant]
  8. POTASSIUM CHLORIDE [Concomitant]
  9. FUROSEMIDE [Concomitant]
  10. ALPHAGAN P [Concomitant]
  11. CEPHALEXIN [Concomitant]
  12. HYDROCODONE BITARTRATE AND ACETAMINOPHEN [Concomitant]
  13. LIDOCAINE HCL VISCOUS [Concomitant]
  14. ACYCLOVIR [Concomitant]
  15. MEGESTROL [Concomitant]
  16. GABAPENTIN [Concomitant]
  17. LEVOTHYROXINE SODIUM [Concomitant]
  18. METOLAZONE [Concomitant]
  19. AMBIEN [Concomitant]
  20. LYRICA [Concomitant]
  21. DARVOCET-N 100 [Concomitant]
  22. CIPROFLOXACIN HYDROCHLORIDE [Concomitant]
  23. VANCOMYCIN [Concomitant]
  24. PANAFIL [Concomitant]
  25. ZYVOX [Concomitant]
  26. ALBUTEROL SULFATE AUTOHALER [Concomitant]
  27. NYSTOP [Concomitant]
  28. MYCOSTATIN [Concomitant]
  29. TRIAMCINOLONE [Concomitant]
  30. FLUCONAZOLE [Concomitant]
  31. PROCRIT                            /00909301/ [Concomitant]
  32. MEGACE [Concomitant]
  33. ZINACEF [Concomitant]
  34. MELPHALAN [Concomitant]
  35. DECADRON [Concomitant]
  36. NABUMETONE [Concomitant]
  37. PREMARIN [Concomitant]
  38. NEUPOGEN [Concomitant]
  39. MS CONTIN [Concomitant]
  40. CELEBREX [Concomitant]
  41. ADRIAMYCIN PFS [Concomitant]
  42. VINCRISTINE [Concomitant]

REACTIONS (37)
  - ABSCESS DRAINAGE [None]
  - ANAEMIA [None]
  - ANHEDONIA [None]
  - ANXIETY [None]
  - BACK PAIN [None]
  - BLOOD LACTATE DEHYDROGENASE INCREASED [None]
  - BONE DISORDER [None]
  - BRUXISM [None]
  - CELLULITIS [None]
  - CULTURE URINE POSITIVE [None]
  - DEBRIDEMENT [None]
  - DISABILITY [None]
  - DYSPHAGIA [None]
  - EAR PAIN [None]
  - ESCHERICHIA INFECTION [None]
  - FACIAL BONES FRACTURE [None]
  - FALL [None]
  - GINGIVAL BLEEDING [None]
  - GINGIVAL SWELLING [None]
  - HIP FRACTURE [None]
  - INJURY [None]
  - INTERVERTEBRAL DISC DEGENERATION [None]
  - NEURALGIA [None]
  - OPEN REDUCTION OF FRACTURE [None]
  - OSTEOARTHRITIS [None]
  - OSTEOMA [None]
  - OSTEONECROSIS [None]
  - OSTEOPENIA [None]
  - PAIN [None]
  - PAIN IN JAW [None]
  - PANCYTOPENIA [None]
  - PRIMARY SEQUESTRUM [None]
  - RENAL FAILURE CHRONIC [None]
  - SCOLIOSIS [None]
  - SPINAL OSTEOARTHRITIS [None]
  - STAPHYLOCOCCAL INFECTION [None]
  - SWELLING [None]
